FAERS Safety Report 23191658 (Version 1)
Quarter: 2023Q4

REPORT INFORMATION
  Report Type: Report from Study
  Country: US (occurrence: US)
  Receive Date: 20231116
  Receipt Date: 20231116
  Transmission Date: 20240109
  Serious: Yes (Other)
  Sender: FDA-Public Use
  Company Number: US-002147023-NVSC2023US239662

PATIENT
  Age: 61 Year

DRUGS (1)
  1. COSENTYX [Suspect]
     Active Substance: SECUKINUMAB
     Indication: Psoriasis
     Dosage: UNK
     Route: 065

REACTIONS (12)
  - Clear cell renal cell carcinoma [Recovered/Resolved]
  - Psoriatic arthropathy [Unknown]
  - Rebound effect [Unknown]
  - Lower limb fracture [Unknown]
  - Skin exfoliation [Unknown]
  - Blood creatinine increased [Unknown]
  - Blood urea increased [Unknown]
  - Glomerular filtration rate decreased [Unknown]
  - Platelet count increased [Unknown]
  - Arthritis [Unknown]
  - Erythema [Unknown]
  - Psoriasis [Unknown]

NARRATIVE: CASE EVENT DATE: 20231103
